FAERS Safety Report 7076739-9 (Version None)
Quarter: 2010Q4

REPORT INFORMATION
  Report Type: 
  Country: None (occurrence: None)
  Receive Date: 20101029
  Receipt Date: 20101029
  Transmission Date: 20110411
  Serious: Yes (Other)
  Sender: FDA-Public Use
  Company Number: None

PATIENT
  Age: 43 Year
  Sex: Female
  Weight: 61.2356 kg

DRUGS (1)
  1. VALACYCLOVIR HYDROCHLORIDE [Suspect]
     Indication: HERPES SIMPLEX
     Dosage: 1 TABLET DAILY MAINTANCE, 6 DAILY FOR OUTBREAKS  (DATES OF USE: ALL OF 2010)
     Dates: start: 20100101, end: 20100101

REACTIONS (6)
  - CONDITION AGGRAVATED [None]
  - DRUG INEFFECTIVE [None]
  - HEADACHE [None]
  - HERPES SIMPLEX [None]
  - PAIN [None]
  - WEIGHT INCREASED [None]
